FAERS Safety Report 4785328-8 (Version None)
Quarter: 2005Q3

REPORT INFORMATION
  Report Type: 
  Country: None (occurrence: None)
  Receive Date: 20050929
  Receipt Date: 20050916
  Transmission Date: 20060218
  Serious: Yes (Other)
  Sender: FDA-Public Use
  Company Number: 2005132762

PATIENT
  Sex: Male

DRUGS (4)
  1. NORVASC [Suspect]
     Indication: ILL-DEFINED DISORDER
     Dosage: ORAL
     Route: 048
     Dates: start: 20030101
  2. DIART (AZOSEMIDE) [Concomitant]
  3. BLOPRESS (CANDESARTAN CILEXETIL) [Concomitant]
  4. ENALAPRIL MALEATE [Concomitant]

REACTIONS (5)
  - ASTHENIA [None]
  - BLOOD CREATININE INCREASED [None]
  - BLOOD PRESSURE DECREASED [None]
  - DIZZINESS [None]
  - PROTEIN URINE [None]
